FAERS Safety Report 23727415 (Version 1)
Quarter: 2024Q2

REPORT INFORMATION
  Report Type: Spontaneous
  Country: EG (occurrence: EG)
  Receive Date: 20240410
  Receipt Date: 20240410
  Transmission Date: 20240715
  Serious: Yes (Hospitalization, Other)
  Sender: FDA-Public Use
  Company Number: EG-HIKMA PHARMACEUTICALS USA INC.-EG-H14001-24-02828

PATIENT
  Age: 62 Year
  Sex: Female
  Weight: 130 kg

DRUGS (3)
  1. DOCETAXEL [Suspect]
     Active Substance: DOCETAXEL\DOCETAXEL ANHYDROUS
     Indication: Breast cancer
     Dosage: 130 MG DILUTED IN 500 ML NORMAL SALINE AT A RATE OF ONE HOUR, EVERY 21 DAYS
     Route: 065
     Dates: start: 20231228
  2. DOCETAXEL [Suspect]
     Active Substance: DOCETAXEL\DOCETAXEL ANHYDROUS
     Dosage: 130 MG DILUTED IN 500 ML NORMAL SALINE AT A RATE OF ONE HOUR, EVERY 21 DAYS
     Route: 065
     Dates: start: 20240118
  3. DOCETAXEL [Suspect]
     Active Substance: DOCETAXEL\DOCETAXEL ANHYDROUS
     Dosage: REDUCED DOSE OF 75 MG, DILUTED IN 500 ML NORMAL SALINE AT A RATE OF ONE HOUR
     Route: 065

REACTIONS (6)
  - Neuropathy peripheral [Not Recovered/Not Resolved]
  - Pain in extremity [Unknown]
  - Walking disability [Unknown]
  - Neuralgia [Unknown]
  - Skin ulcer [Unknown]
  - Skin exfoliation [Unknown]

NARRATIVE: CASE EVENT DATE: 20240118
